FAERS Safety Report 7205668-2 (Version None)
Quarter: 2010Q4

REPORT INFORMATION
  Report Type: 
  Country: None (occurrence: None)
  Receive Date: 20101231
  Receipt Date: 20101220
  Transmission Date: 20110411
  Serious: Yes (Hospitalization, Other)
  Sender: FDA-Public Use
  Company Number: PHHY2010NL52137

PATIENT
  Sex: Male

DRUGS (17)
  1. ZOMETA [Suspect]
     Indication: PROSTATE CANCER METASTATIC
     Dosage: 4 MG/ 5ML
     Dates: start: 20100319
  2. ZOMETA [Suspect]
     Dosage: 4 MG/ 5ML
     Dates: start: 20100416
  3. ZOMETA [Suspect]
     Dosage: 4 MG/ 5ML
     Dates: start: 20100520
  4. ZOMETA [Suspect]
     Dosage: 4 MG/ 5ML
     Dates: start: 20100705
  5. ZOMETA [Suspect]
     Dosage: 4 MG/ 5ML
     Dates: start: 20100805
  6. ZOMETA [Suspect]
     Dosage: 4 MG/ 5ML
     Dates: start: 20100831
  7. ZOMETA [Suspect]
     Dosage: 4 MG/ 5ML
     Dates: start: 20101123
  8. ZOMETA [Suspect]
     Dosage: 4 MG/ 5ML
     Dates: start: 20101220
  9. PREDNISONE [Concomitant]
  10. AMLODIPINE [Concomitant]
  11. METOPROLOL [Concomitant]
  12. NEXIUM [Concomitant]
  13. ZOLADEX [Concomitant]
  14. OXAZEPAM [Concomitant]
  15. TAMSULOSIN [Concomitant]
     Dosage: UNK
  16. ACETAMINOPHEN [Concomitant]
  17. MOVICOLON [Concomitant]
     Dosage: WHEN NEEDED

REACTIONS (7)
  - BACK PAIN [None]
  - BONE PAIN [None]
  - FEELING COLD [None]
  - MALAISE [None]
  - METASTASES TO BONE [None]
  - MUSCULOSKELETAL PAIN [None]
  - PLEURAL EFFUSION [None]
